FAERS Safety Report 4474049-7 (Version None)
Quarter: 2004Q4

REPORT INFORMATION
  Report Type: 
  Country: None (occurrence: None)
  Receive Date: 20041008
  Receipt Date: 20040920
  Transmission Date: 20050328
  Serious: Yes (Other)
  Sender: FDA-Public Use
  Company Number: US97040775A

PATIENT
  Age: 60 Year
  Sex: Female
  Weight: 80 kg

DRUGS (8)
  1. HUMULIN 70/30 [Suspect]
     Indication: DIABETES MELLITUS
     Dosage: 55 U DAY
     Dates: start: 19930101
  2. PROVERA [Concomitant]
  3. PEMARIN (ESTROGENS CONJUGTED) [Concomitant]
  4. DYAZIDE [Concomitant]
  5. SLOW-K [Concomitant]
  6. FUROSEMIDE [Concomitant]
  7. POTASSIUM [Concomitant]
  8. ASPIRIN [Concomitant]

REACTIONS (21)
  - APHTHOUS STOMATITIS [None]
  - ASTHENIA [None]
  - BACK DISORDER [None]
  - CEREBROVASCULAR ACCIDENT [None]
  - COUGH [None]
  - DIFFICULTY IN WALKING [None]
  - DRY MOUTH [None]
  - EYE DISORDER [None]
  - EYE IRRITATION [None]
  - EYE PAIN [None]
  - EYE PRURITUS [None]
  - FEELING ABNORMAL [None]
  - GLYCOSYLATED HAEMOGLOBIN INCREASED [None]
  - INFLUENZA LIKE ILLNESS [None]
  - JOINT STIFFNESS [None]
  - LACRIMATION INCREASED [None]
  - NASOPHARYNGITIS [None]
  - NERVOUSNESS [None]
  - PAIN IN EXTREMITY [None]
  - PHARMACEUTICAL PRODUCT COMPLAINT [None]
  - PHARYNGOLARYNGEAL PAIN [None]
